FAERS Safety Report 8921758 (Version 1)
Quarter: 2012Q4

REPORT INFORMATION
  Report Type: 
  Country: JP (occurrence: JP)
  Receive Date: 20121122
  Receipt Date: 20121122
  Transmission Date: 20130627
  Serious: Yes (Death, Hospitalization)
  Sender: FDA-Public Use
  Company Number: JP-AMGEN-JPNSP2012074715

PATIENT
  Age: 81 Year
  Sex: Male

DRUGS (1)
  1. VECTIBIX [Suspect]
     Indication: COLORECTAL CANCER RECURRENT
     Dosage: 6 mg/kg, q2wk
     Route: 041
     Dates: start: 201102, end: 201104

REACTIONS (6)
  - Nephrotic syndrome [Recovering/Resolving]
  - Colorectal cancer recurrent [Fatal]
  - Ascites [Recovering/Resolving]
  - Pleural effusion [Recovering/Resolving]
  - Malaise [Recovering/Resolving]
  - Oedema peripheral [Not Recovered/Not Resolved]
